FAERS Safety Report 5863305-3 (Version None)
Quarter: 2008Q3

REPORT INFORMATION
  Report Type: 
  Country: None (occurrence: None)
  Receive Date: 20080828
  Receipt Date: 20080819
  Transmission Date: 20090109
  Serious: Yes (Other)
  Sender: FDA-Public Use
  Company Number: US-PFIZER INC-2008069476

PATIENT
  Sex: Female
  Weight: 77.1 kg

DRUGS (1)
  1. SULFASALAZINE [Suspect]
     Indication: COLITIS
     Route: 048
     Dates: start: 20080615, end: 20080812

REACTIONS (6)
  - ARTHRALGIA [None]
  - BLISTER [None]
  - DRUG HYPERSENSITIVITY [None]
  - HYPERSENSITIVITY [None]
  - JOINT SWELLING [None]
  - WEIGHT INCREASED [None]
